FAERS Safety Report 17740368 (Version 1)
Quarter: 2020Q2

REPORT INFORMATION
  Report Type: Spontaneous
  Country: US (occurrence: US)
  Receive Date: 20200504
  Receipt Date: 20200504
  Transmission Date: 20200714
  Serious: Yes (Other)
  Sender: FDA-Public Use
  Company Number: US-DRREDDYS-USA/USA/20/0122458

PATIENT
  Age: 38 Year
  Sex: Female

DRUGS (1)
  1. ENALAPRILAT. [Suspect]
     Active Substance: ENALAPRILAT
     Indication: HYPERTENSION
     Route: 042

REACTIONS (1)
  - Blood creatinine increased [Recovered/Resolved]
